FAERS Safety Report 4712944-1 (Version None)
Quarter: 2005Q3

REPORT INFORMATION
  Report Type: 
  Country: None (occurrence: None)
  Receive Date: 20050712
  Receipt Date: 20050712
  Transmission Date: 20060218
  Serious: No
  Sender: FDA-Public Use
  Company Number: None

PATIENT
  Sex: Female
  Weight: 74.8435 kg

DRUGS (7)
  1. FOSAMAX [Suspect]
     Indication: OSTEOPOROSIS
     Dosage: 10MG  QD  ORAL
     Route: 048
     Dates: start: 20000701, end: 20050711
  2. DETROL [Concomitant]
  3. ZOLOFT [Concomitant]
  4. LIPITOR [Concomitant]
  5. ASPIRIN [Concomitant]
  6. GINGKO BILOBA [Concomitant]
  7. CA++ + VIT D [Concomitant]

REACTIONS (2)
  - IMPAIRED HEALING [None]
  - OSTEONECROSIS [None]
